FAERS Safety Report 15688650 (Version 2)
Quarter: 2018Q4

REPORT INFORMATION
  Report Type: Spontaneous
  Country: TW (occurrence: TW)
  Receive Date: 20181205
  Receipt Date: 20181226
  Transmission Date: 20190205
  Serious: Yes (Hospitalization, Other)
  Sender: FDA-Public Use
  Company Number: TW-BRISTOL-MYERS SQUIBB COMPANY-BMS-2018-112559

PATIENT
  Age: 51 Year
  Sex: Male
  Weight: 63 kg

DRUGS (1)
  1. OPDIVO [Suspect]
     Active Substance: NIVOLUMAB
     Indication: LUNG NEOPLASM MALIGNANT
     Dosage: 3 MG/KG, Q2WK
     Route: 065
     Dates: start: 20181017

REACTIONS (2)
  - Hepatic function abnormal [Recovering/Resolving]
  - Pericardial effusion [Unknown]

NARRATIVE: CASE EVENT DATE: 20181120
